FAERS Safety Report 8267150-3 (Version None)
Quarter: 2012Q2

REPORT INFORMATION
  Report Type: 
  Country: None (occurrence: None)
  Receive Date: 20120409
  Receipt Date: 20120328
  Transmission Date: 20120825
  Serious: Yes (Hospitalization)
  Sender: FDA-Public Use
  Company Number: US-JNJFOC-20120303673

PATIENT
  Sex: Female
  Weight: 43.7 kg

DRUGS (4)
  1. INFLIXIMAB, RECOMBINANT [Suspect]
     Indication: INFLAMMATORY BOWEL DISEASE
     Route: 042
     Dates: start: 20110529
  2. LEXAPRO [Concomitant]
  3. AZATHIOPRINE [Concomitant]
  4. MIRALAX [Concomitant]

REACTIONS (1)
  - HAEMORRHAGIC ANAEMIA [None]
